FAERS Safety Report 16024534 (Version 1)
Quarter: 2019Q1

REPORT INFORMATION
  Report Type: Spontaneous
  Country: ES (occurrence: ES)
  Receive Date: 20190301
  Receipt Date: 20190301
  Transmission Date: 20190418
  Serious: Yes (Other)
  Sender: FDA-Public Use
  Company Number: ES-009507513-1902ESP010345

PATIENT
  Age: 49 Year
  Sex: Female

DRUGS (14)
  1. TRAMADOL HYDROCHLORIDE. [Concomitant]
     Active Substance: TRAMADOL HYDROCHLORIDE
  2. DIPYRONE [Concomitant]
     Active Substance: DIPYRONE
  3. QUETIAPINE FUMARATE. [Concomitant]
     Active Substance: QUETIAPINE FUMARATE
  4. CEFTAROLINE FOSAMIL ACETATE [Suspect]
     Active Substance: CEFTAROLINE FOSAMIL
     Indication: ARTHRITIS BACTERIAL
     Dosage: 600 MILLIGRAM, Q12H
     Route: 042
     Dates: start: 20190115, end: 20190206
  5. TAPENTADOL [Concomitant]
     Active Substance: TAPENTADOL
  6. RIVOTRIL [Concomitant]
     Active Substance: CLONAZEPAM
     Dosage: STRENGHT: 2.5 MG/ML
  7. BILASTINE [Concomitant]
     Active Substance: BILASTINE
  8. OMEPRAZOLE. [Concomitant]
     Active Substance: OMEPRAZOLE
  9. FOLIC ACID. [Concomitant]
     Active Substance: FOLIC ACID
  10. POTASSIUM CHLORIDE. [Concomitant]
     Active Substance: POTASSIUM CHLORIDE
  11. DELTIUS [Concomitant]
     Active Substance: CHOLECALCIFEROL
     Dosage: 25.000 UI/ML, 4 VIALS OF 2.5ML
  12. DENOSUMAB [Concomitant]
     Active Substance: DENOSUMAB
  13. DAPTOMYCIN. [Suspect]
     Active Substance: DAPTOMYCIN
     Indication: ARTHRITIS BACTERIAL
     Dosage: 700 MILLIGRAM, Q24H
     Route: 042
     Dates: start: 20190117, end: 20190206
  14. PREGABALIN. [Concomitant]
     Active Substance: PREGABALIN

REACTIONS (1)
  - Neutropenia [Recovered/Resolved]

NARRATIVE: CASE EVENT DATE: 20190117
